FAERS Safety Report 5303242-6 (Version None)
Quarter: 2007Q2

REPORT INFORMATION
  Report Type: 
  Country: None (occurrence: None)
  Receive Date: 20070420
  Receipt Date: 20070410
  Transmission Date: 20071010
  Serious: Yes (Hospitalization)
  Sender: FDA-Public Use
  Company Number: DEWYE759023FEB07

PATIENT
  Sex: Female

DRUGS (3)
  1. ENBREL [Suspect]
     Indication: POLYARTHRITIS
     Dosage: 50 MG PER WEEK
     Route: 058
     Dates: start: 20000701, end: 20010501
  2. ENBREL [Suspect]
     Dosage: UNKNOWN
     Dates: start: 20010601, end: 20060101
  3. LANTAREL [Suspect]
     Dosage: UNKNOWN
     Dates: start: 20060901

REACTIONS (2)
  - DRUG INEFFECTIVE [None]
  - PERICARDIAL EFFUSION [None]
